FAERS Safety Report 9992765 (Version 3)
Quarter: 2014Q4

REPORT INFORMATION
  Report Type: Spontaneous
  Country: JP (occurrence: JP)
  Receive Date: 20140310
  Receipt Date: 20141126
  Transmission Date: 20150529
  Serious: Yes (Death)
  Sender: FDA-Public Use
  Company Number: JP-BRISTOL-MYERS SQUIBB COMPANY-20408795

PATIENT
  Age: 80 Year
  Sex: Male
  Weight: 61 kg

DRUGS (8)
  1. URIEF [Suspect]
     Active Substance: SILODOSIN
     Route: 048
  2. ONGLYZA [Suspect]
     Active Substance: SAXAGLIPTIN HYDROCHLORIDE
     Indication: TYPE 2 DIABETES MELLITUS
     Route: 048
     Dates: start: 20131212, end: 20131222
  3. BAYASPIRIN [Suspect]
     Active Substance: ASPIRIN
     Dosage: TAB
     Route: 048
  4. LIVALO [Suspect]
     Active Substance: PITAVASTATIN CALCIUM
     Dosage: TAB
     Route: 048
  5. FAMOTIDINE. [Suspect]
     Active Substance: FAMOTIDINE
     Route: 048
  6. FRANDOL TAPE S [Suspect]
     Active Substance: ISOSORBIDE DINITRATE
     Route: 062
  7. GRAMALIL [Suspect]
     Active Substance: TIAPRIDE HYDROCHLORIDE
     Route: 048
  8. MOHRUS [Suspect]
     Active Substance: KETOPROFEN
     Dosage: TAPE
     Route: 062

REACTIONS (1)
  - Myocardial infarction [Fatal]

NARRATIVE: CASE EVENT DATE: 20131223
